FAERS Safety Report 23727308 (Version 1)
Quarter: 2024Q2

REPORT INFORMATION
  Report Type: Spontaneous
  Country: US (occurrence: None)
  Receive Date: 20240409
  Receipt Date: 20240409
  Transmission Date: 20240715
  Serious: No
  Sender: FDA-Public Use
  Company Number: None

PATIENT
  Age: 69 Year
  Sex: Female

DRUGS (1)
  1. IMATINIB MESYLATE [Suspect]
     Active Substance: IMATINIB MESYLATE
     Indication: Philadelphia positive chronic myeloid leukaemia
     Dosage: FREQUENCY : TWICE A DAY;?

REACTIONS (9)
  - Epigastric discomfort [None]
  - Fatigue [None]
  - Nausea [None]
  - Insomnia [None]
  - COVID-19 [None]
  - Spinal fracture [None]
  - Fall [None]
  - Intervertebral disc compression [None]
  - White blood cell count [None]
